FAERS Safety Report 5107738-1 (Version None)
Quarter: 2006Q3

REPORT INFORMATION
  Report Type: 
  Country: None (occurrence: None)
  Receive Date: 20060919
  Receipt Date: 20060904
  Transmission Date: 20061208
  Serious: Yes (Hospitalization)
  Sender: FDA-Public Use
  Company Number: FR-AVENTIS-200613072FR

PATIENT
  Sex: Male

DRUGS (3)
  1. KETEK [Suspect]
     Indication: RESPIRATORY TRACT INFECTION
     Route: 048
     Dates: start: 20060901, end: 20060901
  2. LYTOS [Concomitant]
     Indication: MULTIPLE MYELOMA
  3. TRAMADOL LP [Concomitant]
     Indication: MULTIPLE MYELOMA

REACTIONS (3)
  - ARRHYTHMIA [None]
  - DYSPNOEA [None]
  - PERICARDITIS [None]
